FAERS Safety Report 24603538 (Version 1)
Quarter: 2024Q4

REPORT INFORMATION
  Report Type: Spontaneous
  Country: US (occurrence: None)
  Receive Date: 20241109
  Receipt Date: 20241109
  Transmission Date: 20250115
  Serious: No
  Sender: Public
  Company Number: None

PATIENT
  Sex: 0

DRUGS (1)
  1. MICONAZOLE [Suspect]
     Active Substance: MICONAZOLE
     Indication: Vulvovaginal mycotic infection

REACTIONS (4)
  - Vulvovaginal burning sensation [None]
  - Vaginal haemorrhage [None]
  - Vulvovaginal pruritus [None]
  - Product complaint [None]

NARRATIVE: CASE EVENT DATE: 20241109
